FAERS Safety Report 18086287 (Version 2)
Quarter: 2024Q2

REPORT INFORMATION
  Report Type: Spontaneous
  Country: CA (occurrence: CA)
  Receive Date: 20200728
  Receipt Date: 20240419
  Transmission Date: 20240716
  Serious: Yes (Hospitalization, Disabling, Other)
  Sender: FDA-Public Use
  Company Number: CA-BAXTER-2020BAX014876

PATIENT
  Age: 72 Year
  Sex: Male

DRUGS (44)
  1. CYCLOPHOSPHAMIDE [Suspect]
     Active Substance: CYCLOPHOSPHAMIDE
     Indication: Product used for unknown indication
     Dosage: 1200 MG, DOSAGE FORM: NOT SPECIFIED
     Route: 042
  2. CYCLOPHOSPHAMIDE [Suspect]
     Active Substance: CYCLOPHOSPHAMIDE
     Dosage: 175 MG, 1 EVERY 1 DAYS
     Route: 048
  3. ALENDRONATE [Suspect]
     Active Substance: ALENDRONATE SODIUM
     Indication: Product used for unknown indication
     Dosage: 70 MG, 1 EVERY 1 WEEKS
     Route: 048
  4. BICALUTAMIDE [Suspect]
     Active Substance: BICALUTAMIDE
     Indication: Product used for unknown indication
     Dosage: 50 MG, 1 EVERY 1 DAYS
     Route: 048
  5. CALCIUM [Suspect]
     Active Substance: CALCIUM
     Indication: Product used for unknown indication
     Dosage: UNK, DOSAGE FORM: NOT SPECIFIED
     Route: 065
  6. FLUTICASONE [Suspect]
     Active Substance: FLUTICASONE
     Indication: Eosinophilic granulomatosis with polyangiitis
     Dosage: UNK, DOSAGE FORM : NOT SPECIFIED
     Route: 065
  7. FOLATE SODIUM [Suspect]
     Active Substance: FOLATE SODIUM
     Indication: Product used for unknown indication
     Dosage: 5 MG, 1 EVERY 1 DAYS, DOSAGE FORM: NOT SPECIFIED
     Route: 065
  8. LANSOPRAZOLE [Suspect]
     Active Substance: LANSOPRAZOLE
     Indication: Product used for unknown indication
     Dosage: 30 MG, 1 EVERY 1 DAYS, DELAYED RELEASE
     Route: 065
  9. METHOTREXATE [Suspect]
     Active Substance: METHOTREXATE
     Indication: Product used for unknown indication
     Dosage: 15 MG, 1 EVERY 1 WEEKS
     Route: 065
  10. METHOTREXATE [Suspect]
     Active Substance: METHOTREXATE
     Dosage: 25 MG, 1 EVERY 1 WEEKS, DOSAGE FORM: NOT SPECIFIED
     Route: 065
  11. METHOTREXATE [Suspect]
     Active Substance: METHOTREXATE
     Dosage: 7.5 MG, 1 EVERY 1 WEEKS
     Route: 065
  12. METHOTREXATE [Suspect]
     Active Substance: METHOTREXATE
     Dosage: 20 MG
     Route: 065
  13. METHOTREXATE [Suspect]
     Active Substance: METHOTREXATE
     Dosage: 25 MG, 1 EVERY 1 WEEKS
     Route: 065
  14. METHOTREXATE [Suspect]
     Active Substance: METHOTREXATE
     Dosage: 15 MG
     Route: 065
  15. OMNARIS [Suspect]
     Active Substance: CICLESONIDE
     Indication: Product used for unknown indication
     Dosage: 2 DOSAGE FORMS, DOSAGE FORM: SPARY, METERED DOSE, INTRA-NASAL
     Route: 050
  16. PREDNISONE [Suspect]
     Active Substance: PREDNISONE
     Indication: Product used for unknown indication
     Dosage: 5 MG, 1 EVERY 1 DAYS, DOSAGE FORM: NOT SPECIFIED
     Route: 065
  17. PREDNISONE [Suspect]
     Active Substance: PREDNISONE
     Dosage: 10 MG, 1 EVERY 1 DAYS
     Route: 065
  18. PREDNISONE [Suspect]
     Active Substance: PREDNISONE
     Dosage: 7.5 MG, 1 EVERY 1 DAYS
     Route: 065
  19. PREDNISONE [Suspect]
     Active Substance: PREDNISONE
     Dosage: 2 MG, 1 EVERY 1 DAYS
     Route: 065
  20. PREDNISONE [Suspect]
     Active Substance: PREDNISONE
     Dosage: 2 MG
     Route: 065
  21. PREDNISONE [Suspect]
     Active Substance: PREDNISONE
     Dosage: 1 MG
     Route: 065
  22. RAMIPRIL [Suspect]
     Active Substance: RAMIPRIL
     Indication: Product used for unknown indication
     Dosage: 10 MG, 1 EVERY 1 DAYS, DOSAGE FORM: NOT SPECIFIED
     Route: 048
  23. SODIUM BICARBONATE\SODIUM CHLORIDE [Suspect]
     Active Substance: SODIUM BICARBONATE\SODIUM CHLORIDE
     Indication: Product used for unknown indication
     Dosage: UNK, DOSAGE FORM: SOLUTION NASAL
     Route: 065
  24. SULFAMETHOXAZOLE\TRIMETHOPRIM [Suspect]
     Active Substance: SULFAMETHOXAZOLE\TRIMETHOPRIM
     Indication: Product used for unknown indication
     Dosage: UNK
     Route: 065
  25. VENTOLIN [Suspect]
     Active Substance: ALBUTEROL SULFATE
     Indication: Eosinophilic granulomatosis with polyangiitis
     Dosage: UNK, DOSAGE FORM: NOT SPECIFIED
     Route: 065
  26. VITAMIN D [Suspect]
     Active Substance: VITAMIN D NOS
     Indication: Product used for unknown indication
     Dosage: UNK, DOSAGE FORM: NOT SPECIFIED
     Route: 065
  27. GOSERELIN [Suspect]
     Active Substance: GOSERELIN
     Indication: Product used for unknown indication
     Dosage: UNK
     Route: 065
  28. FLUTICASONE PROPIONATE\SALMETEROL XINAFOATE [Suspect]
     Active Substance: FLUTICASONE PROPIONATE\SALMETEROL XINAFOATE
     Indication: Eosinophilic granulomatosis with polyangiitis
     Dosage: 2 DOSAGE FORMS, 1 EVERY 1 DAYS
     Route: 065
  29. FLUTICASONE PROPIONATE\SALMETEROL XINAFOATE [Suspect]
     Active Substance: FLUTICASONE PROPIONATE\SALMETEROL XINAFOATE
     Indication: Product used for unknown indication
     Dosage: 1.0 DOSAGE FORMS, 1 EVERY 12 HOURS
     Route: 065
  30. ALBUTEROL [Suspect]
     Active Substance: ALBUTEROL
     Indication: Eosinophilic granulomatosis with polyangiitis
     Dosage: UNK, DOSAGE FORM: NOT SPECIFIED
     Route: 065
  31. ALENDRONATE SODIUM [Suspect]
     Active Substance: ALENDRONATE SODIUM
     Indication: Product used for unknown indication
     Dosage: 70 MG, 1 EVERY 1 WEEK
     Route: 048
  32. ALENDRONATE SODIUM [Suspect]
     Active Substance: ALENDRONATE SODIUM
     Dosage: 50 MG, 1 EVERY 1 DAYS
     Route: 048
  33. AZELASTINE HYDROCHLORIDE\FLUTICASONE PROPIONATE [Suspect]
     Active Substance: AZELASTINE HYDROCHLORIDE\FLUTICASONE PROPIONATE
     Indication: Eosinophilic granulomatosis with polyangiitis
     Dosage: UNK
     Route: 065
  34. BROMHEXINE HYDROCHLORIDE [Suspect]
     Active Substance: BROMHEXINE HYDROCHLORIDE
     Indication: Product used for unknown indication
     Dosage: UNK
     Route: 065
  35. CALCIUM CARBONATE [Suspect]
     Active Substance: CALCIUM CARBONATE
     Indication: Eosinophilic granulomatosis with polyangiitis
     Dosage: UNK, DOSAGE FORM: NOT SPECIFIED
     Route: 065
  36. FOLIC ACID [Suspect]
     Active Substance: FOLIC ACID
     Indication: Product used for unknown indication
     Dosage: 5 MG, 1 EVERY 1 DAYS, DOSAGE FORM: NOT SPECIFIED
     Route: 065
  37. FOSAMAX [Suspect]
     Active Substance: ALENDRONATE SODIUM
     Indication: Product used for unknown indication
     Dosage: 70 MG
     Route: 048
  38. FOSAMAX [Suspect]
     Active Substance: ALENDRONATE SODIUM
     Dosage: 70 MG
     Route: 065
  39. GOSERELIN [Suspect]
     Active Substance: GOSERELIN
     Indication: Product used for unknown indication
     Dosage: UNK
     Route: 058
  40. ALBUTEROL [Suspect]
     Active Substance: ALBUTEROL
     Indication: Eosinophilic granulomatosis with polyangiitis
     Dosage: UNK, DOSAGE FORM: NOT SPECIFIED
     Route: 065
  41. SALMETEROL XINAFOATE [Suspect]
     Active Substance: SALMETEROL XINAFOATE
     Indication: Eosinophilic granulomatosis with polyangiitis
     Dosage: 1 DOSAGE FORMS, 1 EVERY 12 HOURS
     Route: 065
  42. SODIUM BICARBONATE [Suspect]
     Active Substance: SODIUM BICARBONATE
     Indication: Product used for unknown indication
     Dosage: UNK, DOSAGE FORM: NOT SPECIFIED
     Route: 065
  43. EDETATE CALCIUM DISODIUM [Suspect]
     Active Substance: EDETATE CALCIUM DISODIUM
     Indication: Product used for unknown indication
     Dosage: UNK
     Route: 065
  44. NUCALA [Concomitant]
     Active Substance: MEPOLIZUMAB
     Indication: Eosinophilic granulomatosis with polyangiitis
     Dosage: 300 MG, 1 EVERY 1 MONTHS
     Route: 042

REACTIONS (34)
  - Airway remodelling [Unknown]
  - Asthma [Unknown]
  - Atopy [Unknown]
  - Blood immunoglobulin E increased [Unknown]
  - Cardiac septal defect [Unknown]
  - Central nervous system mass [Unknown]
  - Eosinophil count increased [Unknown]
  - Eosinophilic granulomatosis with polyangiitis [Unknown]
  - Eosinophilic myocarditis [Unknown]
  - Memory impairment [Unknown]
  - Nasal polyps [Unknown]
  - Obesity [Unknown]
  - Obstructive airways disorder [Unknown]
  - Prostate cancer [Unknown]
  - Renal disorder [Unknown]
  - Respiratory symptom [Unknown]
  - Ventricular hypokinesia [Unknown]
  - Wall motion score index abnormal [Unknown]
  - Microangiopathy [Unknown]
  - Haemorrhage [Unknown]
  - Nodule [Unknown]
  - Productive cough [Unknown]
  - Condition aggravated [Unknown]
  - Chronic sinusitis [Unknown]
  - Eosinophilic pneumonia [Unknown]
  - Confusional state [Unknown]
  - Haematuria [Unknown]
  - Hypertension [Unknown]
  - Pneumonia [Unknown]
  - Viral infection [Unknown]
  - Eosinophil count decreased [Unknown]
  - Lacrimation increased [Unknown]
  - Lymphopenia [Unknown]
  - Respiratory tract infection [Unknown]
